FAERS Safety Report 10900047 (Version 1)
Quarter: 2015Q1

REPORT INFORMATION
  Report Type: Spontaneous
  Country: None (occurrence: US)
  Receive Date: 20150310
  Receipt Date: 20150310
  Transmission Date: 20150721
  Serious: No
  Sender: FDA-Public Use
  Company Number: US-TEVA-538884USA

PATIENT
  Age: 52 Year
  Sex: Male

DRUGS (1)
  1. CAPECITABINE. [Suspect]
     Active Substance: CAPECITABINE
     Dosage: 2000 MILLIGRAM DAILY; 2 TABLETS EVERY 12 HRS, 7 DAYS ON AND 7 DAYS OFF AND REPEAT
     Route: 048

REACTIONS (2)
  - Product substitution issue [Unknown]
  - Abdominal pain [Unknown]
